FAERS Safety Report 9256093 (Version 1)
Quarter: 2013Q2

REPORT INFORMATION
  Report Type: Spontaneous
  Country: US (occurrence: US)
  Receive Date: 20130425
  Receipt Date: 20130425
  Transmission Date: 20140414
  Serious: No
  Sender: FDA-Public Use
  Company Number: US-AMGEN-USASP2012031422

PATIENT
  Age: 60 Year
  Sex: Female
  Weight: 123 kg

DRUGS (14)
  1. NEULASTA [Suspect]
     Indication: CHEMOTHERAPY
     Dosage: 6 MG, ONE TIME DOSE
     Route: 058
     Dates: start: 20120509, end: 20120509
  2. TAXOTERE [Concomitant]
     Indication: BREAST CANCER
     Dosage: 174 MG, UNK
     Route: 042
     Dates: start: 20120508, end: 20120508
  3. CYTOXAN [Concomitant]
     Indication: BREAST CANCER
     Dosage: 1390 MG, UNK
     Route: 042
     Dates: start: 20120508, end: 20120508
  4. AMLODIPINE [Concomitant]
  5. HYDROCHLOROTHIAZIDE [Concomitant]
  6. ATENOLOL [Concomitant]
  7. THYROID [Concomitant]
  8. PRAVASTATIN [Concomitant]
  9. COQ10 [Concomitant]
  10. MULTIVITAMIN [Concomitant]
  11. ADVIL [Concomitant]
  12. TYLENOL [Concomitant]
  13. CLARITIN-D [Concomitant]
  14. CLARITIN D [Concomitant]

REACTIONS (5)
  - Tinnitus [Not Recovered/Not Resolved]
  - Diarrhoea [Recovered/Resolved]
  - Stomatitis [Not Recovered/Not Resolved]
  - Rash [Recovered/Resolved]
  - Bone pain [Recovering/Resolving]
